FAERS Safety Report 4870235-2 (Version None)
Quarter: 2005Q4

REPORT INFORMATION
  Report Type: 
  Country: None (occurrence: None)
  Receive Date: 20051228
  Receipt Date: 20051216
  Transmission Date: 20060501
  Serious: Yes (Hospitalization)
  Sender: FDA-Public Use
  Company Number: PAR_0449_2005

PATIENT
  Age: 14 Month
  Sex: Male

DRUGS (1)
  1. IBUPROFEN [Suspect]
     Indication: VIRAL UPPER RESPIRATORY TRACT INFECTION
     Dosage: DF

REACTIONS (7)
  - ANEURYSM [None]
  - BLOOD ALBUMIN DECREASED [None]
  - GASTRITIS HAEMORRHAGIC [None]
  - GASTROINTESTINAL HAEMORRHAGE [None]
  - HAEMOGLOBIN DECREASED [None]
  - LYMPHOID TISSUE HYPERPLASIA [None]
  - PANCREATIC HAEMORRHAGE [None]
